FAERS Safety Report 4388281-4 (Version None)
Quarter: 2004Q3

REPORT INFORMATION
  Report Type: 
  Country: None (occurrence: None)
  Receive Date: 20040701
  Receipt Date: 20040624
  Transmission Date: 20050211
  Serious: Yes (Death, Hospitalization)
  Sender: FDA-Public Use
  Company Number: GB-BRISTOL-MYERS SQUIBB COMPANY-12623823

PATIENT
  Age: 40 Year
  Sex: Male

DRUGS (10)
  1. EFAVIRENZ [Interacting]
  2. DIDANOSINE [Suspect]
  3. ABACAVIR [Suspect]
  4. LAMIVUDINE [Suspect]
  5. TENOFOVIR DISOPROXIL FUMARATE [Suspect]
  6. MYCOPHENOLATE MOFETIL [Suspect]
  7. STAVUDINE [Concomitant]
  8. TACROLIMUS [Concomitant]
  9. ZIDOVUDINE [Concomitant]
  10. PEGINTERFERON ALFA-2A [Concomitant]

REACTIONS (14)
  - BLOOD BILIRUBIN INCREASED [None]
  - CEREBRAL HAEMORRHAGE [None]
  - CHOLESTASIS [None]
  - DRUG INTERACTION [None]
  - GRAND MAL CONVULSION [None]
  - HEADACHE [None]
  - HEPATIC FUNCTION ABNORMAL [None]
  - HYPERTENSION [None]
  - LACTIC ACIDOSIS [None]
  - MITOCHONDRIAL CYTOPATHY [None]
  - NAUSEA [None]
  - NECROSIS [None]
  - THROMBOCYTOPENIA [None]
  - VOMITING [None]
